FAERS Safety Report 7985614-4 (Version None)
Quarter: 2011Q4

REPORT INFORMATION
  Report Type: 
  Country: None (occurrence: None)
  Receive Date: 20111216
  Receipt Date: 20111207
  Transmission Date: 20120403
  Serious: Yes (Hospitalization)
  Sender: FDA-Public Use
  Company Number: CH-BRISTOL-MYERS SQUIBB COMPANY-16275240

PATIENT
  Age: 48 Year
  Sex: Male

DRUGS (10)
  1. VIREAD [Suspect]
  2. GANCICLOVIR SODIUM [Suspect]
     Route: 041
     Dates: start: 20110920, end: 20110930
  3. CLINDAMYCIN [Concomitant]
     Route: 041
     Dates: start: 20110923, end: 20110930
  4. ISENTRESS [Concomitant]
     Route: 048
     Dates: start: 20110909
  5. VIDEX [Suspect]
     Route: 048
     Dates: start: 20110909
  6. INTELENCE [Concomitant]
     Dates: start: 20110909
  7. LEUCOVORIN-FARMOS [Concomitant]
  8. DARAPRIM [Concomitant]
     Route: 048
     Dates: start: 20110909
  9. PREZISTA [Concomitant]
     Route: 048
     Dates: start: 20110909
  10. NORVIR [Concomitant]
     Route: 048
     Dates: start: 20110909

REACTIONS (2)
  - GENERAL PHYSICAL HEALTH DETERIORATION [None]
  - NEUROPATHY PERIPHERAL [None]
